FAERS Safety Report 6724869-0 (Version None)
Quarter: 2010Q2

REPORT INFORMATION
  Report Type: 
  Country: None (occurrence: None)
  Receive Date: 20100513
  Receipt Date: 20100513
  Transmission Date: 20101027
  Serious: Yes (Life-Threatening, Hospitalization)
  Sender: FDA-Public Use
  Company Number: None

PATIENT
  Age: 60 Year
  Sex: Female
  Weight: 81.8 kg

DRUGS (1)
  1. CYCLOGYL [Suspect]
     Indication: MYDRIASIS
     Dates: start: 20100419

REACTIONS (6)
  - BLOOD PRESSURE DECREASED [None]
  - DIZZINESS [None]
  - HALLUCINATION [None]
  - HYPOAESTHESIA [None]
  - HYPOVENTILATION [None]
  - URINARY RETENTION [None]
